FAERS Safety Report 9016990 (Version 2)
Quarter: 2013Q2

REPORT INFORMATION
  Report Type: Spontaneous
  Country: US (occurrence: US)
  Receive Date: 20130117
  Receipt Date: 20130514
  Transmission Date: 20140414
  Serious: No
  Sender: FDA-Public Use
  Company Number: US-009507513-1301USA003287

PATIENT
  Sex: Female
  Weight: 69.84 kg

DRUGS (2)
  1. AZASITE [Suspect]
     Indication: CONJUNCTIVITIS
     Dosage: ONE DROP IN EACH EYE TWICE A DAY FOR 2 DAYS
     Route: 047
     Dates: start: 20130104, end: 20130105
  2. AZASITE [Suspect]
     Dosage: ONE DROP IN EACH EYE ONCE A DAY FOR 5 DAYS
     Route: 047
     Dates: start: 20130106, end: 20130110

REACTIONS (3)
  - Product packaging quantity issue [Unknown]
  - Drug dose omission [Unknown]
  - No adverse event [Unknown]
